FAERS Safety Report 6086738-1 (Version None)
Quarter: 2009Q1

REPORT INFORMATION
  Report Type: 
  Country: None (occurrence: None)
  Receive Date: 20090223
  Receipt Date: 20090211
  Transmission Date: 20090719
  Serious: Yes (Hospitalization)
  Sender: FDA-Public Use
  Company Number: US-PFIZER INC-2009168339

PATIENT
  Sex: Male
  Weight: 49.3 kg

DRUGS (7)
  1. SOMATROPIN [Suspect]
     Indication: PRADER-WILLI SYNDROME
     Dosage: 2.6 MG, 1X/DAY
     Route: 058
     Dates: start: 20030715
  2. DEPO-TESTOSTERONE [Suspect]
     Dosage: 150 MG, EVERY 3 WEEKS
     Route: 030
     Dates: start: 20080127
  3. LITHIUM CARBONATE [Suspect]
     Dosage: 300MG MORNING AND 600MG NIGHT
     Route: 048
     Dates: start: 20080101
  4. ZYPREXA [Suspect]
     Dosage: 10 MG, 1X/DAY
     Route: 048
     Dates: start: 20080101
  5. OS-CAL [Concomitant]
     Dosage: 500 MG, 1X/DAY
     Route: 048
     Dates: start: 20081101
  6. SYNTHROID [Concomitant]
     Dosage: 50 UG, 1X/DAY
     Route: 048
     Dates: start: 20090106
  7. MIRALAX [Concomitant]
     Dosage: 17GRAM POWDER 1 1/2 PACKETS BID
     Route: 048
     Dates: start: 20080101

REACTIONS (1)
  - PRIAPISM [None]
